FAERS Safety Report 24307261 (Version 2)
Quarter: 2024Q3

REPORT INFORMATION
  Report Type: Spontaneous
  Country: JP (occurrence: JP)
  Receive Date: 20240911
  Receipt Date: 20240925
  Transmission Date: 20241016
  Serious: Yes (Death, Hospitalization, Other)
  Sender: SANOFI AVENTIS
  Company Number: JP-SA-2024SA258970

PATIENT
  Age: 78 Year
  Sex: Female

DRUGS (3)
  1. ALEMTUZUMAB [Suspect]
     Active Substance: ALEMTUZUMAB
     Indication: T-cell prolymphocytic leukaemia
     Dosage: INTRAVENOUS ADMINISTRATION
     Route: 041
  2. FLUDARABINE [Concomitant]
     Active Substance: FLUDARABINE PHOSPHATE
     Indication: T-cell prolymphocytic leukaemia
     Dosage: 20 MG, QD
     Route: 065
  3. CYCLOPHOSPHAMIDE [Concomitant]
     Active Substance: CYCLOPHOSPHAMIDE
     Indication: T-cell prolymphocytic leukaemia
     Dosage: 200 MG, QD
     Route: 065

REACTIONS (10)
  - Epstein-Barr virus associated lymphoma [Fatal]
  - Pyrexia [Fatal]
  - Malaise [Fatal]
  - Off label use [Fatal]
  - Diffuse large B-cell lymphoma [Fatal]
  - Thrombocytopenia [Fatal]
  - Bone marrow failure [Fatal]
  - Immune thrombocytopenia [Fatal]
  - Lymphadenopathy [Fatal]
  - Cardiac failure [Fatal]
